FAERS Safety Report 8460712-X (Version None)
Quarter: 2012Q2

REPORT INFORMATION
  Report Type: 
  Country: None (occurrence: None)
  Receive Date: 20120622
  Receipt Date: 20120618
  Transmission Date: 20120825
  Serious: Yes (Other)
  Sender: FDA-Public Use
  Company Number: IT-BAXTER-2012BAX008797

PATIENT
  Sex: Male

DRUGS (1)
  1. CYCLOPHOSPHAMIDE [Suspect]
     Indication: NON-HODGKIN'S LYMPHOMA
     Route: 042
     Dates: start: 20120606, end: 20120606

REACTIONS (3)
  - HYPOTENSION [None]
  - THROAT TIGHTNESS [None]
  - NECK PAIN [None]
